FAERS Safety Report 8760057 (Version 1)
Quarter: 2012Q4

REPORT INFORMATION
  Report Type: 
  Country: US (occurrence: US)
  Receive Date: 20120829
  Receipt Date: 20120829
  Transmission Date: 20130627
  Serious: Yes (Other)
  Sender: FDA-Public Use
  Company Number: US-CELGENEUS-163-21880-11062127

PATIENT
  Sex: Male

DRUGS (2)
  1. REVLIMID [Suspect]
     Indication: MULTIPLE MYELOMA
     Dosage: 10 Milligram
     Route: 048
     Dates: start: 200803
  2. REVLIMID [Suspect]
     Dosage: 2.5 Milligram
     Route: 048
     Dates: start: 201102

REACTIONS (3)
  - Renal failure [Unknown]
  - Nephrogenic anaemia [Unknown]
  - Blood creatinine increased [Unknown]
